FAERS Safety Report 12534580 (Version 3)
Quarter: 2016Q3

REPORT INFORMATION
  Report Type: Spontaneous
  Country: US (occurrence: US)
  Receive Date: 20160706
  Receipt Date: 20160727
  Transmission Date: 20161109
  Serious: Yes (Other)
  Sender: FDA-Public Use
  Company Number: US-ALLERGAN-1661847US

PATIENT
  Sex: Female

DRUGS (1)
  1. REFRESH PLUS [Suspect]
     Active Substance: CARBOXYMETHYLCELLULOSE SODIUM
     Indication: DRY EYE
     Dosage: UNK, EVERY 15-20 MINUTES
     Route: 047

REACTIONS (4)
  - Eye discharge [Not Recovered/Not Resolved]
  - Product deposit [Not Recovered/Not Resolved]
  - Hip fracture [Not Recovered/Not Resolved]
  - Vulval cancer [Recovered/Resolved]

NARRATIVE: CASE EVENT DATE: 2015
